FAERS Safety Report 18202138 (Version 1)
Quarter: 2020Q3

REPORT INFORMATION
  Report Type: Spontaneous
  Country: US (occurrence: US)
  Receive Date: 20200827
  Receipt Date: 20200827
  Transmission Date: 20201103
  Serious: No
  Sender: FDA-Public Use
  Company Number: US-PFIZER INC-2020332065

PATIENT
  Age: 76 Year
  Sex: Female

DRUGS (1)
  1. XELJANZ [Suspect]
     Active Substance: TOFACITINIB CITRATE
     Dosage: 10 MG

REACTIONS (6)
  - Illness [Unknown]
  - Herpes zoster [Unknown]
  - Pain [Not Recovered/Not Resolved]
  - Blister [Unknown]
  - Carpal tunnel syndrome [Unknown]
  - Somnolence [Unknown]
